FAERS Safety Report 6028126-X (Version None)
Quarter: 2009Q1

REPORT INFORMATION
  Report Type: 
  Country: None (occurrence: None)
  Receive Date: 20090105
  Receipt Date: 20090105
  Transmission Date: 20090719
  Serious: Yes (Hospitalization, Disabling, Other)
  Sender: FDA-Public Use
  Company Number: None

PATIENT
  Sex: Female
  Weight: 72.5755 kg

DRUGS (1)
  1. CLONAZEPAM [Suspect]
     Indication: RESTLESS LEGS SYNDROME
     Dosage: 0.5 MIL. 1/2 - 1 TABLET AT BEDTIME
     Dates: start: 20060301, end: 20080901

REACTIONS (3)
  - FALL [None]
  - LOSS OF EMPLOYMENT [None]
  - UPPER LIMB FRACTURE [None]
